FAERS Safety Report 17747213 (Version 3)
Quarter: 2020Q2

REPORT INFORMATION
  Report Type: Report from Study
  Country: CA (occurrence: CA)
  Receive Date: 20200505
  Receipt Date: 20200626
  Transmission Date: 20200714
  Serious: Yes (Hospitalization)
  Sender: FDA-Public Use
  Company Number: PHHY2017CA163083

PATIENT
  Age: 67 Year
  Sex: Female

DRUGS (17)
  1. METFORMIN [Suspect]
     Active Substance: METFORMIN HYDROCHLORIDE
     Indication: HYPERGLYCAEMIA
     Dosage: 500 MG, BID (MORNING AND EVENING)
     Route: 065
     Dates: start: 2019
  2. DIAZOXIDE [Suspect]
     Active Substance: DIAZOXIDE
     Indication: PRODUCT USED FOR UNKNOWN INDICATION
     Dosage: 50 MG/ ML (0.5ML IN THE MORNING AND 1ML IN THE AFTERNOON)
     Route: 065
  3. OCTREOTIDE. [Suspect]
     Active Substance: OCTREOTIDE
     Indication: NEUROENDOCRINE TUMOUR
     Dosage: 100 UG, QHS
     Route: 058
     Dates: start: 201707
  4. OCTREOTIDE. [Suspect]
     Active Substance: OCTREOTIDE
     Dosage: 3 DF, QD
     Route: 058
     Dates: start: 2017
  5. HYDROXYZINE [Concomitant]
     Active Substance: HYDROXYZINE HYDROCHLORIDE
     Dosage: 10MG / CO, 1CO AT BEDTIME
     Route: 048
     Dates: start: 20200203
  6. SANDOSTATIN LAR DEPOT [Suspect]
     Active Substance: OCTREOTIDE ACETATE
     Dosage: UNK
     Route: 065
  7. SANDOSTATIN [Suspect]
     Active Substance: OCTREOTIDE ACETATE
     Indication: CARCINOID TUMOUR
  8. LANSOPRAZOLE. [Concomitant]
     Active Substance: LANSOPRAZOLE
     Indication: PRODUCT USED FOR UNKNOWN INDICATION
     Dosage: 30 MG, QD (30 MINS BEFORE BREAKFAST AS NEEDED)
     Route: 065
  9. SANDOSTATIN LAR DEPOT [Suspect]
     Active Substance: OCTREOTIDE ACETATE
     Indication: NEUROENDOCRINE TUMOUR
     Dosage: 40 MG, QMO (EVERY 4 WEEKS)
     Route: 030
  10. OCTREOTIDE. [Suspect]
     Active Substance: OCTREOTIDE
     Indication: CARCINOID TUMOUR
     Dosage: 50 UG, BID (MORNING AND AFTERNOON)
     Route: 058
     Dates: start: 201707
  11. PRAMOX HC [Concomitant]
     Indication: PRURITUS
     Dosage: 1 TO 4 TIMES/DAY, PRN
     Route: 061
  12. HYDROXYZINE [Concomitant]
     Active Substance: HYDROXYZINE HYDROCHLORIDE
     Indication: PRURITUS
     Dosage: 25 MG, PRN
     Route: 048
  13. ATARAX [Suspect]
     Active Substance: HYDROXYZINE HYDROCHLORIDE
     Indication: PRODUCT USED FOR UNKNOWN INDICATION
     Route: 065
  14. CETIRIZINE [Concomitant]
     Active Substance: CETIRIZINE HYDROCHLORIDE
     Indication: PRURITUS
     Dosage: 20MG / CO,1CO AT BEDTIME
     Route: 065
     Dates: start: 20200124
  15. SANDOSTATIN LAR DEPOT [Suspect]
     Active Substance: OCTREOTIDE ACETATE
     Indication: CARCINOID TUMOUR
     Dosage: 60 MG, QMO (EVERY 4 WEEKS)
     Route: 030
     Dates: start: 20171004
  16. SANDOSTATIN LAR DEPOT [Suspect]
     Active Substance: OCTREOTIDE ACETATE
     Indication: INSULINOMA
     Dosage: 60 MG, QMO (EVERY 4 WEEKS)
     Route: 030
     Dates: start: 20180821
  17. SANDOSTATIN [Suspect]
     Active Substance: OCTREOTIDE ACETATE
     Indication: NEUROENDOCRINE TUMOUR
     Dosage: 100 UG, BID
     Route: 058
     Dates: start: 201707

REACTIONS (29)
  - Blood glucose decreased [Unknown]
  - Vertigo [Not Recovered/Not Resolved]
  - Gait disturbance [Unknown]
  - Hyperglycaemia [Not Recovered/Not Resolved]
  - Balance disorder [Unknown]
  - Fall [Unknown]
  - Haematoma [Unknown]
  - Dizziness [Not Recovered/Not Resolved]
  - Alopecia [Unknown]
  - Skin plaque [Unknown]
  - Erythema [Unknown]
  - Blood glucose abnormal [Unknown]
  - Pain [Unknown]
  - Abdominal pain upper [Recovered/Resolved]
  - Injection site pain [Unknown]
  - Oedema peripheral [Unknown]
  - Arthralgia [Unknown]
  - Blood glucose increased [Unknown]
  - Injection site hypersensitivity [Unknown]
  - Body temperature decreased [Unknown]
  - Arthritis [Recovered/Resolved]
  - Vision blurred [Unknown]
  - Fatigue [Unknown]
  - Blood pressure diastolic decreased [Unknown]
  - Blood pressure systolic increased [Unknown]
  - Thirst [Unknown]
  - Dry mouth [Unknown]
  - Dyspnoea [Unknown]
  - Needle issue [Unknown]

NARRATIVE: CASE EVENT DATE: 201710
